FAERS Safety Report 10557304 (Version 1)
Quarter: 2014Q4

REPORT INFORMATION
  Report Type: Spontaneous
  Country: US (occurrence: None)
  Receive Date: 20141029
  Receipt Date: 20141029
  Transmission Date: 20150529
  Serious: Yes (Other)
  Sender: FDA-Public Use
  Company Number: US-2014-TEC0000012

PATIENT
  Age: 27 Year
  Sex: Female

DRUGS (4)
  1. BIVALIRUDIN [Suspect]
     Active Substance: BIVALIRUDIN
     Indication: COAGULATION TIME PROLONGED
     Route: 041
  2. MILRINONE (MILRINONE) [Concomitant]
     Active Substance: MILRINONE
  3. EPINEPHRINE (EPINEPHRINE) [Concomitant]
  4. HEPARIN SODIUM INJECTION USP, PRESERVATIVE FREE (HEPARIN SODIUM) INJECTION [Suspect]
     Active Substance: HEPARIN SODIUM
     Indication: COAGULATION TIME PROLONGED
     Route: 040

REACTIONS (8)
  - Pulseless electrical activity [None]
  - Heparin-induced thrombocytopenia [None]
  - Thrombosis [None]
  - Left ventricular failure [None]
  - Myocardial infarction [None]
  - Low cardiac output syndrome [None]
  - Hypotension [None]
  - Cardiogenic shock [None]
